FAERS Safety Report 4773013-8 (Version None)
Quarter: 2005Q3

REPORT INFORMATION
  Report Type: 
  Country: None (occurrence: None)
  Receive Date: 20050916
  Receipt Date: 20050916
  Transmission Date: 20060218
  Serious: Yes (Hospitalization, Other)
  Sender: FDA-Public Use
  Company Number: None

PATIENT
  Sex: Female
  Weight: 57 kg

DRUGS (6)
  1. TAXOL [Suspect]
     Indication: NON-SMALL CELL LUNG CANCER
     Dosage: SEE IMAGE
     Route: 042
     Dates: start: 20050907
  2. CARBOPLATIN [Suspect]
     Dosage: SEE IMAGE
     Route: 042
     Dates: start: 20050907
  3. DIOVAN [Concomitant]
  4. IMDUR [Concomitant]
  5. PLAVIX [Concomitant]
  6. DILTIAZEM HCL [Concomitant]

REACTIONS (5)
  - CHEST PAIN [None]
  - DYSPNOEA [None]
  - HYPOTENSION [None]
  - MYOCARDIAL INFARCTION [None]
  - MYOCARDIAL ISCHAEMIA [None]
